FAERS Safety Report 18387388 (Version 1)
Quarter: 2020Q4

REPORT INFORMATION
  Report Type: Spontaneous
  Country: US (occurrence: US)
  Receive Date: 20201015
  Receipt Date: 20201015
  Transmission Date: 20210114
  Serious: Yes (Hospitalization)
  Sender: FDA-Public Use
  Company Number: None

PATIENT
  Sex: Male

DRUGS (15)
  1. METOPROLOL TARTRATE. [Concomitant]
     Active Substance: METOPROLOL TARTRATE
  2. KLONOPIN [Concomitant]
     Active Substance: CLONAZEPAM
  3. LISINOPRIL. [Concomitant]
     Active Substance: LISINOPRIL
  4. ROZERM [Concomitant]
  5. VYNDAMAX [Suspect]
     Active Substance: TAFAMIDIS
     Indication: AMYLOIDOSIS
     Route: 048
     Dates: start: 20200117
  6. WELLBUTRIN [Concomitant]
     Active Substance: BUPROPION HYDROCHLORIDE
  7. POT CHLORIDE [Concomitant]
     Active Substance: POTASSIUM CHLORIDE
  8. SYNTHROID [Concomitant]
     Active Substance: LEVOTHYROXINE SODIUM
  9. CLONAZEPAM. [Concomitant]
     Active Substance: CLONAZEPAM
  10. LAMICTAL [Concomitant]
     Active Substance: LAMOTRIGINE
  11. LEXAPRO [Concomitant]
     Active Substance: ESCITALOPRAM OXALATE
  12. PROPAFENONE. [Concomitant]
     Active Substance: PROPAFENONE
  13. RAMELTEON [Concomitant]
     Active Substance: RAMELTEON
  14. TORSEMIDE. [Concomitant]
     Active Substance: TORSEMIDE
  15. COUMADIN [Suspect]
     Active Substance: WARFARIN SODIUM

REACTIONS (2)
  - Internal haemorrhage [None]
  - Urinary tract infection [None]
